FAERS Safety Report 21065708 (Version 1)
Quarter: 2022Q3

REPORT INFORMATION
  Report Type: Spontaneous
  Country: CN (occurrence: CN)
  Receive Date: 20220711
  Receipt Date: 20220711
  Transmission Date: 20221027
  Serious: Yes (Other)
  Sender: FDA-Public Use
  Company Number: CN-FreseniusKabi-FK202209471

PATIENT
  Age: 4 Year
  Sex: Male
  Weight: 15.00 kg

DRUGS (4)
  1. SMOFLIPID [Suspect]
     Active Substance: FISH OIL\MEDIUM-CHAIN TRIGLYCERIDES\OLIVE OIL\SOYBEAN OIL
     Indication: Nutritional supplementation
     Route: 042
     Dates: start: 20220624, end: 20220624
  2. ELECTROLYTES NOS [Suspect]
     Active Substance: ELECTROLYTES NOS
     Indication: Nutritional supplementation
     Route: 042
     Dates: start: 20220624, end: 20220624
  3. VITAMINS NOS [Suspect]
     Active Substance: VITAMINS
     Indication: Nutritional supplementation
     Route: 042
     Dates: start: 20220624, end: 20220624
  4. VITAMINS [Suspect]
     Active Substance: VITAMINS
     Indication: Nutritional supplementation
     Route: 042
     Dates: start: 20220624, end: 20220624

REACTIONS (2)
  - Tachypnoea [Recovered/Resolved]
  - Cyanosis [Recovered/Resolved]

NARRATIVE: CASE EVENT DATE: 20220624
